FAERS Safety Report 11896199 (Version 5)
Quarter: 2018Q4

REPORT INFORMATION
  Report Type: Report from Study
  Country: US (occurrence: US)
  Receive Date: 20160107
  Receipt Date: 20181029
  Transmission Date: 20190204
  Serious: Yes (Other)
  Sender: FDA-Public Use
  Company Number: US-AMGEN-USASL2015140439

PATIENT
  Age: 63 Year
  Sex: Male

DRUGS (16)
  1. AMOX+AC CLAV ALM [Concomitant]
     Dosage: 875 MG, UNK
  2. COD LIVER OIL [Concomitant]
     Active Substance: COD LIVER OIL
     Dosage: UNK
  3. VITAMIN D3 [Concomitant]
     Active Substance: CHOLECALCIFEROL
     Dosage: UNK
  4. VITAMIN B12 [Concomitant]
     Active Substance: CYANOCOBALAMIN
     Dosage: UNK
  5. ENBREL [Suspect]
     Active Substance: ETANERCEPT
     Indication: RHEUMATOID ARTHRITIS
     Dosage: 50 MG, QWK
     Route: 058
     Dates: start: 201511
  6. TYLENOL WITH CODEINE [Concomitant]
     Active Substance: ACETAMINOPHEN\CODEINE PHOSPHATE
     Dosage: UNK
  7. GABAPENTIN. [Concomitant]
     Active Substance: GABAPENTIN
     Dosage: UNK
  8. ENBREL [Suspect]
     Active Substance: ETANERCEPT
     Dosage: 50 MG, QWK
     Route: 058
  9. METHOTREXATE. [Concomitant]
     Active Substance: METHOTREXATE
     Dosage: UNK
  10. PREDNISONE. [Concomitant]
     Active Substance: PREDNISONE
     Dosage: 05 MG, UNK
  11. VITAMIN C [Concomitant]
     Active Substance: ASCORBIC ACID
     Dosage: UNK
  12. NAPROXEN. [Concomitant]
     Active Substance: NAPROXEN
     Dosage: UNK
  13. ENBREL [Suspect]
     Active Substance: ETANERCEPT
     Dosage: 50 MG, QWK
     Route: 058
  14. COLCHICINE. [Concomitant]
     Active Substance: COLCHICINE
     Dosage: 0.6 MG, UNK
  15. AMOX+AC CLAV ALM [Concomitant]
     Dosage: 500 MG, UNK
  16. VIAGRA [Concomitant]
     Active Substance: SILDENAFIL CITRATE
     Dosage: 100 MG, UNK

REACTIONS (7)
  - Drug ineffective [Unknown]
  - Paraesthesia [Not Recovered/Not Resolved]
  - Limb discomfort [Unknown]
  - Burning sensation [Not Recovered/Not Resolved]
  - Tooth abscess [Unknown]
  - Hypoaesthesia [Not Recovered/Not Resolved]
  - Musculoskeletal stiffness [Unknown]

NARRATIVE: CASE EVENT DATE: 2015
